FAERS Safety Report 24799745 (Version 2)
Quarter: 2025Q1

REPORT INFORMATION
  Report Type: Spontaneous
  Country: US (occurrence: US)
  Receive Date: 20250102
  Receipt Date: 20250124
  Transmission Date: 20250409
  Serious: No
  Sender: SANOFI AVENTIS
  Company Number: US-SA-2025SA000036

PATIENT
  Age: 57 Year
  Sex: Male

DRUGS (6)
  1. DUPIXENT [Suspect]
     Active Substance: DUPILUMAB
     Indication: Dermatitis atopic
     Dosage: 300 MG, QOW
     Route: 058
     Dates: start: 20241126
  2. BUPROPION [Concomitant]
     Active Substance: BUPROPION
  3. FISH OIL [Concomitant]
     Active Substance: FISH OIL
  4. FLECAINIDE [Concomitant]
     Active Substance: FLECAINIDE
  5. NIACIN [Concomitant]
     Active Substance: NIACIN
  6. ROSUVASTATIN [Concomitant]
     Active Substance: ROSUVASTATIN

REACTIONS (1)
  - Sleep disorder due to a general medical condition [Unknown]
